FAERS Safety Report 6794562-7 (Version None)
Quarter: 2010Q2

REPORT INFORMATION
  Report Type: 
  Country: None (occurrence: None)
  Receive Date: 20100625
  Receipt Date: 20100615
  Transmission Date: 20101027
  Serious: Yes (Other)
  Sender: FDA-Public Use
  Company Number: US-PFIZER INC-2010067950

PATIENT
  Sex: Male
  Weight: 65.76 kg

DRUGS (7)
  1. ZOLOFT [Interacting]
     Indication: ANXIETY
     Dosage: 150 MG, 1X/DAY
     Route: 048
     Dates: start: 20090901
  2. MOTRIN IB [Suspect]
     Indication: BACK PAIN
     Dosage: 200 MG, 1X/DAY
     Route: 048
     Dates: start: 20100501, end: 20100602
  3. ACETYLSALICYLIC ACID [Interacting]
     Dosage: 81 MG, 1X/DAY
     Route: 048
     Dates: start: 20090101, end: 20100401
  4. LIPITOR [Concomitant]
     Indication: BLOOD CHOLESTEROL INCREASED
     Dosage: 80 MG, 1X/DAY
     Route: 048
  5. ACTOS [Concomitant]
     Indication: DIABETES MELLITUS
     Dosage: 45 MG, 1X/DAY
     Route: 048
  6. LISINOPRIL [Concomitant]
     Indication: PROPHYLAXIS
     Dosage: 10 MG, 1X/DAY
     Route: 048
  7. METFORMIN [Concomitant]
     Indication: DIABETES MELLITUS
     Dosage: 1000 MG, 2X/DAY
     Route: 048

REACTIONS (8)
  - BACK PAIN [None]
  - DRUG INTERACTION [None]
  - HAEMORRHAGE [None]
  - KIDNEY ENLARGEMENT [None]
  - PANCREATITIS [None]
  - RENAL HAEMORRHAGE [None]
  - URETERIC DILATATION [None]
  - WEIGHT DECREASED [None]
